FAERS Safety Report 24302108 (Version 1)
Quarter: 2024Q3

REPORT INFORMATION
  Report Type: Spontaneous
  Country: US (occurrence: None)
  Receive Date: 20240906
  Receipt Date: 20240906
  Transmission Date: 20241016
  Serious: No
  Sender: Public
  Company Number: None

PATIENT
  Age: 65 Year
  Sex: Female

DRUGS (1)
  1. AMBRISENTAN [Suspect]
     Active Substance: AMBRISENTAN
     Dosage: 10 MG DAILY ORAL
     Route: 048

REACTIONS (2)
  - Skin odour abnormal [None]
  - Skin odour abnormal [None]

NARRATIVE: CASE EVENT DATE: 20240905
